FAERS Safety Report 6802824-X (Version None)
Quarter: 2010Q2

REPORT INFORMATION
  Report Type: 
  Country: None (occurrence: None)
  Receive Date: 20100628
  Receipt Date: 20100615
  Transmission Date: 20101027
  Serious: Yes (Hospitalization, Other)
  Sender: FDA-Public Use
  Company Number: PHHY2010US38587

PATIENT
  Sex: Female
  Weight: 65.77 kg

DRUGS (4)
  1. EXJADE [Suspect]
     Indication: SICKLE CELL ANAEMIA
     Dosage: 1000 MG DAILY
     Route: 048
     Dates: start: 20070713
  2. EXJADE [Suspect]
     Indication: IRON OVERLOAD
     Dosage: 500 MG, QD
     Route: 048
     Dates: start: 20100409, end: 20100426
  3. VANCOMYCIN [Concomitant]
  4. METHADONE [Concomitant]
     Dosage: 10 MG, TID

REACTIONS (10)
  - CENTRAL VENOUS CATHETERISATION [None]
  - IRON OVERLOAD [None]
  - PAIN [None]
  - PELVIC PAIN [None]
  - PULMONARY HYPERTENSION [None]
  - SICKLE CELL ANAEMIA WITH CRISIS [None]
  - STAPHYLOCOCCAL SEPSIS [None]
  - THROMBOCYTOPENIA [None]
  - TOOTH FRACTURE [None]
  - WHEELCHAIR USER [None]
